FAERS Safety Report 10756743 (Version 3)
Quarter: 2015Q1

REPORT INFORMATION
  Report Type: Spontaneous
  Country: US (occurrence: US)
  Receive Date: 20150202
  Receipt Date: 20150317
  Transmission Date: 20150721
  Serious: No
  Sender: FDA-Public Use
  Company Number: US-009507513-1501USA010187

PATIENT
  Sex: Female
  Weight: 77.98 kg

DRUGS (4)
  1. NEXPLANON [Suspect]
     Active Substance: ETONOGESTREL
     Indication: CONTRACEPTION
     Dosage: 68 MG EVERY THREE YEARS
     Route: 059
     Dates: start: 201307
  2. IBUPROFEN. [Concomitant]
     Active Substance: IBUPROFEN
     Dosage: UNK, PRN
  3. HYDROCODONE [Suspect]
     Active Substance: HYDROCODONE
  4. AMOXICILLIN. [Suspect]
     Active Substance: AMOXICILLIN

REACTIONS (4)
  - Mood swings [Recovered/Resolved]
  - Tooth extraction [Unknown]
  - Libido decreased [Unknown]
  - Irritability [Unknown]
